FAERS Safety Report 7638844-5 (Version None)
Quarter: 2011Q3

REPORT INFORMATION
  Report Type: 
  Country: None (occurrence: None)
  Receive Date: 20110727
  Receipt Date: 20110713
  Transmission Date: 20111222
  Serious: Yes (Other)
  Sender: FDA-Public Use
  Company Number: HU-MYLANLABS-2011S1014968

PATIENT
  Age: 67 Year
  Sex: Female

DRUGS (7)
  1. LIPOIC ACID [Concomitant]
     Indication: POLYNEUROPATHY
  2. IRINOTECAN HCL [Suspect]
     Indication: COLORECTAL CANCER
  3. PREGABALIN [Concomitant]
     Indication: POLYNEUROPATHY
  4. BEVACIZUMAB [Concomitant]
     Indication: COLORECTAL CANCER
  5. FENTANYL [Concomitant]
     Indication: POLYNEUROPATHY
  6. FLUOROURACIL [Suspect]
     Indication: COLORECTAL CANCER
  7. HYDROMORPHONE HCL [Concomitant]
     Indication: POLYNEUROPATHY

REACTIONS (3)
  - COMPLEX REGIONAL PAIN SYNDROME [None]
  - PARAESTHESIA [None]
  - POLYNEUROPATHY [None]
